FAERS Safety Report 10737658 (Version 4)
Quarter: 2015Q3

REPORT INFORMATION
  Report Type: Report from Study
  Country: BR (occurrence: BR)
  Receive Date: 20150126
  Receipt Date: 20150928
  Transmission Date: 20151125
  Serious: Yes (Hospitalization, Disabling, Other)
  Sender: FDA-Public Use
  Company Number: BR-ABBVIE-15K-020-1335714-00

PATIENT
  Age: 68 Year
  Sex: Female
  Weight: 72 kg

DRUGS (19)
  1. OMEGA 3 [Concomitant]
     Active Substance: OMEGA-3 FATTY ACIDS
     Indication: PRODUCT USED FOR UNKNOWN INDICATION
     Route: 048
  2. EUTHYROX [Concomitant]
     Active Substance: LEVOTHYROXINE SODIUM
     Indication: THYROID DISORDER
     Route: 048
     Dates: start: 2004
  3. BLACKBERRY EXTRACT [Concomitant]
     Indication: HORMONE REPLACEMENT THERAPY
     Route: 048
     Dates: end: 201505
  4. HUMIRA [Suspect]
     Active Substance: ADALIMUMAB
     Indication: RHEUMATOID ARTHRITIS
     Route: 058
     Dates: start: 20080105
  5. PREDNISONE. [Concomitant]
     Active Substance: PREDNISONE
     Indication: ARTHRITIS
     Route: 048
     Dates: start: 2005
  6. CALCIUM [Concomitant]
     Active Substance: CALCIUM
     Indication: ARTHRITIS
  7. MELOXICAM. [Concomitant]
     Active Substance: MELOXICAM
     Indication: ARTHRITIS
     Route: 048
     Dates: start: 2004
  8. MELOXICAM. [Concomitant]
     Active Substance: MELOXICAM
     Indication: FALL
  9. TECNOMET [Concomitant]
     Active Substance: METHOTREXATE
     Indication: FALL
  10. CALCIUM [Concomitant]
     Active Substance: CALCIUM
     Indication: FALL
  11. FLUOXETIN [Concomitant]
     Active Substance: FLUOXETINE HYDROCHLORIDE
     Indication: DEPRESSION
     Route: 048
     Dates: start: 2005
  12. GLIFAGE [Concomitant]
     Active Substance: METFORMIN HYDROCHLORIDE
     Indication: DIABETES MELLITUS
     Route: 048
     Dates: start: 2009
  13. ULTRACET [Concomitant]
     Active Substance: ACETAMINOPHEN\TRAMADOL HYDROCHLORIDE
     Indication: PAIN
     Route: 048
     Dates: start: 2004
  14. TECNOMET [Concomitant]
     Active Substance: METHOTREXATE
     Indication: ARTHRITIS
  15. MELOXICAM. [Concomitant]
     Active Substance: MELOXICAM
     Indication: ANTIINFLAMMATORY THERAPY
  16. FLUOXETINE [Concomitant]
     Active Substance: FLUOXETINE\FLUOXETINE HYDROCHLORIDE
     Indication: ANTIDEPRESSANT THERAPY
     Route: 048
     Dates: start: 2004
  17. PREDNISONE. [Concomitant]
     Active Substance: PREDNISONE
     Indication: FALL
     Route: 048
     Dates: start: 2004
  18. PREDNISONE. [Concomitant]
     Active Substance: PREDNISONE
     Indication: ANTIINFLAMMATORY THERAPY
  19. OMEPRAZOLE. [Concomitant]
     Active Substance: OMEPRAZOLE
     Indication: GASTRIC DISORDER
     Route: 048
     Dates: start: 2005

REACTIONS (16)
  - Gait disturbance [Unknown]
  - Spinal fracture [Recovering/Resolving]
  - Nerve compression [Unknown]
  - Fall [Recovering/Resolving]
  - Paraesthesia [Unknown]
  - Hormone level abnormal [Unknown]
  - Blood test abnormal [Unknown]
  - Malaise [Recovered/Resolved]
  - Hypertension [Not Recovered/Not Resolved]
  - Pain in extremity [Unknown]
  - X-ray abnormal [Unknown]
  - Weight increased [Unknown]
  - Intervertebral disc protrusion [Unknown]
  - Nuclear magnetic resonance imaging abnormal [Unknown]
  - Diarrhoea [Unknown]
  - Accident [Recovering/Resolving]

NARRATIVE: CASE EVENT DATE: 2008
